FAERS Safety Report 6738109-X (Version None)
Quarter: 2010Q2

REPORT INFORMATION
  Report Type: 
  Country: None (occurrence: None)
  Receive Date: 20100520
  Receipt Date: 20100510
  Transmission Date: 20101027
  Serious: Yes (Other)
  Sender: FDA-Public Use
  Company Number: 2010JP002499

PATIENT
  Age: 28 Year
  Sex: Female
  Weight: 59 kg

DRUGS (4)
  1. PROGRAF [Suspect]
     Indication: SYSTEMIC LUPUS ERYTHEMATOSUS
     Dosage: 4 MG, UID/QD, ORAL
     Route: 048
     Dates: start: 20080918, end: 20090203
  2. ACTEMRA [Suspect]
     Indication: SYSTEMIC LUPUS ERYTHEMATOSUS
     Dosage: 400 MG,MONTHLY, IV DRIP
     Route: 041
     Dates: start: 20081201, end: 20090123
  3. PREDNISOLONE [Suspect]
     Indication: SYSTEMIC LUPUS ERYTHEMATOSUS
     Dosage: 40 MG, UID/QD, ORAL
     Route: 048
  4. WARFARIN SODIUM [Concomitant]

REACTIONS (6)
  - BLOOD CULTURE POSITIVE [None]
  - DEHYDRATION [None]
  - ENDOCARDITIS [None]
  - RENAL FAILURE ACUTE [None]
  - SEPTIC SHOCK [None]
  - STAPHYLOCOCCAL INFECTION [None]
